FAERS Safety Report 8470192-6 (Version None)
Quarter: 2012Q2

REPORT INFORMATION
  Report Type: 
  Country: None (occurrence: None)
  Receive Date: 20120621
  Receipt Date: 20120621
  Transmission Date: 20120825
  Serious: Yes (Life-Threatening, Hospitalization)
  Sender: FDA-Public Use
  Company Number: None

PATIENT
  Sex: Female
  Weight: 89.8122 kg

DRUGS (8)
  1. QUETIAPINE -SEROQUEL XR- [Concomitant]
  2. INDOMETHACIN [Suspect]
     Indication: GOUT
     Dates: start: 20120115, end: 20120115
  3. EMTRICITABINE/TENOFOVIR DISOPROXIL FUMARATE [Concomitant]
  4. NORETHINDRONE [Concomitant]
  5. ESOMEPRAZOLE SODIUM [Suspect]
     Dates: start: 20120115, end: 20120115
  6. HYDROCHLOROTHIAZDE TAB [Concomitant]
  7. HYDROXYZINE [Concomitant]
  8. ATAZANVIR -REYATAZ- [Concomitant]

REACTIONS (3)
  - SWOLLEN TONGUE [None]
  - LIP SWELLING [None]
  - SWELLING FACE [None]
